FAERS Safety Report 8014416-8 (Version None)
Quarter: 2011Q4

REPORT INFORMATION
  Report Type: 
  Country: None (occurrence: None)
  Receive Date: 20111229
  Receipt Date: 20111222
  Transmission Date: 20120403
  Serious: Yes (Hospitalization)
  Sender: FDA-Public Use
  Company Number: PHHO2011GB13634

PATIENT
  Sex: Male

DRUGS (2)
  1. TKI258 [Suspect]
     Indication: RENAL CELL CARCINOMA
     Dosage: 200
     Route: 048
     Dates: start: 20110804
  2. AFINITOR [Suspect]
     Indication: RENAL CELL CARCINOMA
     Dosage: 5
     Route: 048
     Dates: start: 20110804

REACTIONS (2)
  - HYPERCALCAEMIA [None]
  - ANAEMIA [None]
